FAERS Safety Report 11746803 (Version 5)
Quarter: 2016Q1

REPORT INFORMATION
  Report Type: Report from Study
  Country: US (occurrence: US)
  Receive Date: 20151117
  Receipt Date: 20160111
  Transmission Date: 20160525
  Serious: Yes (Death, Hospitalization)
  Sender: FDA-Public Use
  Company Number: US-ACTELION-A-NJ2015-121022

PATIENT
  Age: 83 Year
  Sex: Female

DRUGS (2)
  1. VENTAVIS [Suspect]
     Active Substance: ILOPROST
     Indication: PULMONARY ARTERIAL HYPERTENSION
     Dosage: 6X/DAILY
     Route: 055
     Dates: end: 20160101
  2. TRACLEER [Suspect]
     Active Substance: BOSENTAN
     Indication: PULMONARY ARTERIAL HYPERTENSION
     Dosage: UNK
     Route: 048
     Dates: end: 20160101

REACTIONS (9)
  - Condition aggravated [Fatal]
  - Pneumonia [Unknown]
  - Dyspnoea [Unknown]
  - Peripheral swelling [Unknown]
  - Pulmonary arterial hypertension [Fatal]
  - Fatigue [Unknown]
  - Lung disorder [Unknown]
  - Localised infection [Unknown]
  - Asthenia [Unknown]
